FAERS Safety Report 9913609 (Version 4)
Quarter: 2014Q2

REPORT INFORMATION
  Report Type: Spontaneous
  Country: JP (occurrence: JP)
  Receive Date: 20140220
  Receipt Date: 20140430
  Transmission Date: 20141212
  Serious: Yes (Other)
  Sender: FDA-Public Use
  Company Number: JP-OTSUKA-JP-2014-11128

PATIENT
  Age: 73 Year
  Sex: Female
  Weight: 51.2 kg

DRUGS (12)
  1. SAMSCA [Suspect]
     Indication: HEPATIC CIRRHOSIS
     Dosage: 7.5 MG MILLIGRAM(S), DAILY DOSE
     Route: 048
     Dates: start: 20140130, end: 20140219
  2. SAMSCA [Suspect]
     Indication: ASCITES
  3. PREDONINE [Suspect]
     Indication: AUTOIMMUNE HEPATITIS
     Dosage: 30 MG MILLIGRAM(S), DAILY DOSE
     Route: 048
     Dates: start: 20140206, end: 20140220
  4. PREDONINE [Suspect]
     Dosage: 25 MG MILLIGRAM(S), DAILY DOSE
     Route: 048
     Dates: start: 20140221
  5. URSO [Concomitant]
     Dosage: 300 MG MILLIGRAM(S), DAILY DOSE
     Route: 048
  6. AMLODIPINE [Concomitant]
     Dosage: 5 MG MILLIGRAM(S), DAILY DOSE
     Route: 048
  7. SPIRONOLACTONE [Concomitant]
     Dosage: 50 MG MILLIGRAM(S), DAILY DOSE
     Route: 048
     Dates: start: 20131212
  8. FUROSEMIDE [Concomitant]
     Dosage: 80 MG MILLIGRAM(S), DAILY DOSE
     Route: 048
     Dates: start: 20131212
  9. LIVACT [Concomitant]
     Dosage: 3 DF DOSAGE FORM, DAILY DOSE
     Route: 048
     Dates: start: 20131212
  10. REBAMIPIDE [Concomitant]
     Dosage: 300 MG MILLIGRAM(S), DAILY DOSE
     Route: 048
     Dates: start: 20140108
  11. MAGTECT [Concomitant]
     Dosage: 30 ML MILLILITRE(S), DAILY DOSE
     Route: 048
     Dates: start: 20140108
  12. FAMOTIDINE [Concomitant]
     Dosage: 20 MG MILLIGRAM(S), DAILY DOSE
     Route: 048
     Dates: start: 20140108

REACTIONS (1)
  - Renal impairment [Recovering/Resolving]
